FAERS Safety Report 9271888 (Version 1)
Quarter: 2013Q2

REPORT INFORMATION
  Report Type: Spontaneous
  Country: US (occurrence: US)
  Receive Date: 20130506
  Receipt Date: 20130506
  Transmission Date: 20140414
  Serious: Yes (Other)
  Sender: FDA-Public Use
  Company Number: US-PFIZER INC-2013136592

PATIENT
  Age: 55 Year
  Sex: Female
  Weight: 38.55 kg

DRUGS (4)
  1. PREMPRO [Suspect]
     Indication: MENOPAUSE
     Dosage: UNK
     Route: 048
  2. SYNTHROID [Concomitant]
     Dosage: 50 UG, UNK
  3. PYRIDIUM [Concomitant]
     Dosage: UNK
  4. VALIUM [Concomitant]
     Indication: ANXIETY
     Dosage: 10 MG, UNK

REACTIONS (13)
  - Road traffic accident [Unknown]
  - Cerebrovascular accident [Unknown]
  - Hypertension [Unknown]
  - Breast mass [Unknown]
  - Weight increased [Unknown]
  - Vomiting [Unknown]
  - Tooth loss [Unknown]
  - Migraine [Unknown]
  - Osteoporosis [Unknown]
  - Burning sensation [Unknown]
  - Nausea [Unknown]
  - Diarrhoea [Unknown]
  - Gastrooesophageal reflux disease [Unknown]
